FAERS Safety Report 21140333 (Version 2)
Quarter: 2022Q3

REPORT INFORMATION
  Report Type: Report from Study
  Country: US (occurrence: US)
  Receive Date: 20220728
  Receipt Date: 20220811
  Transmission Date: 20221027
  Serious: Yes (Hospitalization)
  Sender: FDA-Public Use
  Company Number: US-JNJFOC-20220741240

PATIENT
  Age: 18 Year
  Sex: Female
  Weight: 51.7 kg

DRUGS (2)
  1. INFLIXIMAB [Suspect]
     Active Substance: INFLIXIMAB
     Indication: Inflammatory bowel disease
     Route: 041
     Dates: start: 20160311, end: 20170922
  2. STELARA [Concomitant]
     Active Substance: USTEKINUMAB
     Indication: Inflammatory bowel disease
     Route: 065
     Dates: start: 20200511

REACTIONS (2)
  - Gastrointestinal stoma complication [Recovered/Resolved with Sequelae]
  - Intestinal obstruction [Recovered/Resolved]

NARRATIVE: CASE EVENT DATE: 20200705
